FAERS Safety Report 8969409 (Version 1)
Quarter: 2012Q4

REPORT INFORMATION
  Report Type: 
  Country: US (occurrence: US)
  Receive Date: 20121218
  Receipt Date: 20121218
  Transmission Date: 20130627
  Serious: No
  Sender: FDA-Public Use
  Company Number: US-BRISTOL-MYERS SQUIBB COMPANY-16645996

PATIENT
  Age: 61 Year
  Sex: Male
  Weight: 74.37 kg

DRUGS (2)
  1. ABILIFY [Suspect]
     Indication: GENERALISED ANXIETY DISORDER
  2. ABILIFY [Suspect]
     Indication: BIPOLAR DISORDER

REACTIONS (1)
  - Memory impairment [Not Recovered/Not Resolved]
